FAERS Safety Report 6018504-7 (Version None)
Quarter: 2008Q4

REPORT INFORMATION
  Report Type: 
  Country: None (occurrence: None)
  Receive Date: 20081223
  Receipt Date: 20081210
  Transmission Date: 20090506
  Serious: Yes (Other)
  Sender: FDA-Public Use
  Company Number: PHBS2006JP12854

PATIENT
  Sex: Female

DRUGS (4)
  1. AREDIA [Suspect]
     Indication: MULTIPLE MYELOMA
     Dosage: 45 MG, QMO
     Route: 042
     Dates: start: 20020601, end: 20060609
  2. ZOMETA [Suspect]
     Indication: MULTIPLE MYELOMA
     Dosage: 4 MG, UNK
     Route: 042
     Dates: start: 20060714, end: 20060714
  3. THALIDOMIDE [Concomitant]
     Dosage: 200 MG/D
     Route: 065
     Dates: start: 20020601
  4. DECADRON [Concomitant]
     Dosage: 40 MG, UNK
     Route: 065

REACTIONS (6)
  - BONE DISORDER [None]
  - DENTURE WEARER [None]
  - GINGIVAL INFECTION [None]
  - MUCOUS MEMBRANE DISORDER [None]
  - OSTEONECROSIS [None]
  - PAIN IN JAW [None]
